FAERS Safety Report 12797422 (Version 1)
Quarter: 2016Q3

REPORT INFORMATION
  Report Type: Report from Study
  Country: CA (occurrence: CA)
  Receive Date: 20160930
  Receipt Date: 20160930
  Transmission Date: 20161109
  Serious: Yes (Hospitalization, Other)
  Sender: FDA-Public Use
  Company Number: CA-AMGEN-CANSL2016132730

PATIENT
  Age: 72 Year
  Sex: Male

DRUGS (3)
  1. NEUPOGEN [Suspect]
     Active Substance: FILGRASTIM
     Indication: PRODUCT USED FOR UNKNOWN INDICATION
     Dosage: 480MCG/1.6 ML
     Route: 065
  2. NITRO [Concomitant]
     Active Substance: NITROGLYCERIN
     Indication: CHEST PAIN
  3. NITRO [Concomitant]
     Active Substance: NITROGLYCERIN
     Indication: BREAST PAIN
     Dosage: UNK

REACTIONS (5)
  - Breast pain [Unknown]
  - Adverse drug reaction [Unknown]
  - Pancreatitis [Unknown]
  - Chest pain [Unknown]
  - Nausea [Unknown]

NARRATIVE: CASE EVENT DATE: 201609
